FAERS Safety Report 5735317-1 (Version None)
Quarter: 2008Q2

REPORT INFORMATION
  Report Type: 
  Country: None (occurrence: None)
  Receive Date: 20080508
  Receipt Date: 20080508
  Transmission Date: 20081010
  Serious: Yes (Other)
  Sender: FDA-Public Use
  Company Number: None

PATIENT

DRUGS (1)
  1. CREST PRO HEALTH RINSE PROCTOR AND GAMBLE [Suspect]
     Dosage: 20 ML 2X/DAY DENTAL
     Route: 004

REACTIONS (5)
  - DISCOMFORT [None]
  - MOUTH ULCERATION [None]
  - PHARMACEUTICAL PRODUCT COMPLAINT [None]
  - SELF ESTEEM DECREASED [None]
  - TOOTH DISCOLOURATION [None]
